FAERS Safety Report 22606901 (Version 1)
Quarter: 2023Q2

REPORT INFORMATION
  Report Type: Spontaneous
  Country: GB (occurrence: GB)
  Receive Date: 20230615
  Receipt Date: 20230615
  Transmission Date: 20230722
  Serious: Yes (Other)
  Sender: FDA-Public Use
  Company Number: GB-TEVA-2023-GB-2896391

PATIENT

DRUGS (1)
  1. LEVOTHYROXINE [Suspect]
     Active Substance: LEVOTHYROXINE
     Indication: Product used for unknown indication
     Route: 065

REACTIONS (11)
  - Hypothyroidism [Unknown]
  - Suicidal ideation [Unknown]
  - Fatigue [Unknown]
  - Lethargy [Unknown]
  - Myalgia [Unknown]
  - Musculoskeletal stiffness [Unknown]
  - Brain fog [Unknown]
  - Bradyphrenia [Unknown]
  - Memory impairment [Unknown]
  - Depressive symptom [Unknown]
  - Loss of personal independence in daily activities [Unknown]
